FAERS Safety Report 6160587-8 (Version None)
Quarter: 2009Q2

REPORT INFORMATION
  Report Type: 
  Country: None (occurrence: None)
  Receive Date: 20090416
  Receipt Date: 20090402
  Transmission Date: 20091009
  Serious: Yes (Other)
  Sender: FDA-Public Use
  Company Number: 1000005713

PATIENT
  Sex: Male

DRUGS (2)
  1. ESCITALOPRAM [Suspect]
  2. ANTICHOLINESTERASICS [Suspect]

REACTIONS (4)
  - DIZZINESS [None]
  - DRUG INTERACTION [None]
  - FALL [None]
  - PSYCHOMOTOR RETARDATION [None]
